FAERS Safety Report 4917780-9 (Version None)
Quarter: 2006Q1

REPORT INFORMATION
  Report Type: 
  Country: None (occurrence: None)
  Receive Date: 20060215
  Receipt Date: 20060203
  Transmission Date: 20060701
  Serious: Yes (Life-Threatening, Other)
  Sender: FDA-Public Use
  Company Number: 2006018645

PATIENT
  Age: 57 Year
  Sex: Female
  Weight: 87.5442 kg

DRUGS (6)
  1. CELEBREX [Suspect]
     Indication: ARTHRITIS
     Dates: start: 20000101
  2. NEURONTIN [Suspect]
     Indication: NEUROPATHY
  3. LORTAB [Concomitant]
  4. SOMA [Concomitant]
  5. AMBIEN [Concomitant]
  6. NEXIUM [Concomitant]

REACTIONS (13)
  - BLOOD GLUCOSE DECREASED [None]
  - BLOOD PRESSURE DECREASED [None]
  - DEHYDRATION [None]
  - FATIGUE [None]
  - HERNIA [None]
  - HUNGER [None]
  - INTESTINAL GANGRENE [None]
  - LETHARGY [None]
  - MOBILITY DECREASED [None]
  - MUSCLE SPASMS [None]
  - OVERDOSE [None]
  - PYREXIA [None]
  - VIRAL INFECTION [None]
